FAERS Safety Report 16950607 (Version 2)
Quarter: 2019Q4

REPORT INFORMATION
  Report Type: Spontaneous
  Country: US (occurrence: US)
  Receive Date: 20191023
  Receipt Date: 20191104
  Transmission Date: 20200122
  Serious: No
  Sender: FDA-Public Use
  Company Number: US-MYLANLABS-2019M1095398

PATIENT
  Sex: Male
  Weight: 174 kg

DRUGS (3)
  1. LIDOCAINE PATCH [Suspect]
     Active Substance: LIDOCAINE
     Dosage: UNK
     Route: 003
  2. LIDOCAINE PATCH [Suspect]
     Active Substance: LIDOCAINE
     Dosage: EVERY 12 HOURS, ON AND OFF
     Route: 003
  3. LIDOCAINE PATCH [Suspect]
     Active Substance: LIDOCAINE
     Indication: PAIN
     Dosage: EVERY 12 HOURS; ON AND OFF
     Route: 003

REACTIONS (4)
  - Manufacturing materials issue [Unknown]
  - Product adhesion issue [Unknown]
  - Off label use [Unknown]
  - Product quality issue [Unknown]
